FAERS Safety Report 24702086 (Version 1)
Quarter: 2024Q4

REPORT INFORMATION
  Report Type: Other
  Country: CN (occurrence: CN)
  Receive Date: 20241205
  Receipt Date: 20241205
  Transmission Date: 20250115
  Serious: Yes (Disabling)
  Sender: PARATEK PHARMACEUTICALS
  Company Number: CN-PARATEK PHARMACEUTICALS, INC.-2024PTK01098

PATIENT
  Age: 25 Year
  Sex: Male
  Weight: 90.5 kg

DRUGS (7)
  1. NUZYRA [Suspect]
     Active Substance: OMADACYCLINE
     Indication: Pneumonia
     Dosage: 0.1 G, 1X/DAY
     Route: 041
     Dates: start: 20241021, end: 20241025
  2. CEFAZOLIN SODIUM [Suspect]
     Active Substance: CEFAZOLIN SODIUM
     Indication: Pneumonia
     Dosage: 2 G, 2X/DAY
     Route: 041
     Dates: start: 20241016, end: 20241021
  3. ILAPRAZOLE [Suspect]
     Active Substance: ILAPRAZOLE
     Indication: Prophylaxis
     Dosage: 10 MG, 1X/DAY
     Route: 041
     Dates: start: 20241019, end: 20241024
  4. AVELOX [Suspect]
     Active Substance: MOXIFLOXACIN HYDROCHLORIDE
     Indication: Pneumonia
     Dosage: 0.4 G, 1X/DAY
     Route: 041
     Dates: start: 20241016, end: 20241021
  5. VORICONAZOLE [Concomitant]
     Active Substance: VORICONAZOLE
     Dosage: UNK
     Dates: start: 20241025, end: 20241029
  6. FU ZHI [Concomitant]
     Dosage: UNK
     Dates: start: 20241015, end: 20241030
  7. MEROPENEM [Concomitant]
     Active Substance: MEROPENEM
     Dosage: UNK
     Dates: start: 20241025, end: 20241029

REACTIONS (5)
  - Blood albumin decreased [Not Recovered/Not Resolved]
  - Condition aggravated [Not Recovered/Not Resolved]
  - Alanine aminotransferase increased [Not Recovered/Not Resolved]
  - Aspartate aminotransferase increased [Not Recovered/Not Resolved]
  - Gamma-glutamyltransferase increased [Not Recovered/Not Resolved]

NARRATIVE: CASE EVENT DATE: 20241026
